FAERS Safety Report 10996538 (Version 1)
Quarter: 2015Q1

REPORT INFORMATION
  Report Type: Spontaneous
  Country: US (occurrence: None)
  Receive Date: 20150331
  Receipt Date: 20150331
  Transmission Date: 20150721
  Serious: Yes (Hospitalization)
  Sender: FDA-Public Use
  Company Number: PHEH2014US015527

PATIENT
  Age: 90 Year
  Sex: Female

DRUGS (1)
  1. EXELON PATCH [Suspect]
     Active Substance: RIVASTIGMINE
     Route: 062

REACTIONS (4)
  - Chills [None]
  - Urinary tract infection [None]
  - Headache [None]
  - Nausea [None]

NARRATIVE: CASE EVENT DATE: 201402
